FAERS Safety Report 14566582 (Version 10)
Quarter: 2018Q4

REPORT INFORMATION
  Report Type: Report from Study
  Country: CH (occurrence: CH)
  Receive Date: 20180223
  Receipt Date: 20181224
  Transmission Date: 20190204
  Serious: Yes (Other)
  Sender: FDA-Public Use
  Company Number: PHHY2017CH162853

PATIENT
  Sex: Male
  Weight: 85 kg

DRUGS (7)
  1. METO ZEROK [Suspect]
     Active Substance: METOPROLOL SUCCINATE
     Indication: CARDIAC FAILURE CHRONIC
     Dosage: 100 MG, QD
     Route: 048
     Dates: start: 2008
  2. INSPRA [Concomitant]
     Active Substance: EPLERENONE
     Indication: PRODUCT USED FOR UNKNOWN INDICATION
     Dosage: 25 MG, QD
     Route: 048
  3. CORDARONE [Concomitant]
     Active Substance: AMIODARONE HYDROCHLORIDE
     Indication: HEART RATE ABNORMAL
     Dosage: 600 MG, QD
     Route: 048
     Dates: start: 20180106, end: 20180111
  4. TORASEMIDE SANDOZ [Suspect]
     Active Substance: TORSEMIDE
     Indication: CARDIAC FAILURE CHRONIC
     Dosage: 10 MG, QD
     Route: 048
     Dates: start: 2016
  5. CORDARONE [Suspect]
     Active Substance: AMIODARONE HYDROCHLORIDE
     Indication: PRODUCT USED FOR UNKNOWN INDICATION
     Dosage: 200 MG, QD
     Route: 048
     Dates: start: 20180112, end: 20180731
  6. ENALAPRIL-MEPHA [Concomitant]
     Active Substance: ENALAPRIL
     Indication: PRODUCT USED FOR UNKNOWN INDICATION
     Dosage: 20 MG, QD
     Route: 048
  7. INEGY [Concomitant]
     Active Substance: EZETIMIBE\SIMVASTATIN
     Indication: PRODUCT USED FOR UNKNOWN INDICATION
     Dosage: 20 MG, QD
     Route: 048
     Dates: start: 2012

REACTIONS (11)
  - Heart rate decreased [Unknown]
  - Cardiac arrest [Recovered/Resolved]
  - Arrhythmia [Unknown]
  - Weight increased [Not Recovered/Not Resolved]
  - Nasopharyngitis [Recovering/Resolving]
  - Loss of consciousness [Recovered/Resolved]
  - Sensation of foreign body [Unknown]
  - Muscular weakness [Recovering/Resolving]
  - Fatigue [Not Recovered/Not Resolved]
  - Syncope [Recovered/Resolved]
  - Nocturia [Recovering/Resolving]

NARRATIVE: CASE EVENT DATE: 201510
